FAERS Safety Report 8172241-1 (Version None)
Quarter: 2012Q1

REPORT INFORMATION
  Report Type: 
  Country: None (occurrence: None)
  Receive Date: 20120229
  Receipt Date: 20120217
  Transmission Date: 20120608
  Serious: Yes (Disabling)
  Sender: FDA-Public Use
  Company Number: JP-GE HEALTHCARE MEDICAL DIAGNOSTICS-OSCN-NO-1112S-0239

PATIENT
  Sex: Male

DRUGS (12)
  1. OMNISCAN [Suspect]
     Indication: DIAGNOSTIC PROCEDURE
  2. FERROUS SULFATE (FERO-GRADUMET) [Concomitant]
  3. ALFACALCIDOL (ALFAROL) [Concomitant]
  4. CALCIUM CARBONATE [Concomitant]
  5. CELTECT (OXATOMIDE) [Concomitant]
  6. NITROFURANTOIN (PROMAC) [Concomitant]
  7. PRAVASTATIN SODIUM [Concomitant]
  8. OMNISCAN [Suspect]
     Indication: RENAL CANCER
     Route: 042
     Dates: start: 20021108, end: 20021108
  9. AMLODIPINE MESYLATE (NORVASC) [Concomitant]
  10. RILMAZAFONE (RHYTHMY) [Concomitant]
  11. GLUCOSE, SODIUM LACTATE, MAGNESIUM CHLORIDE ANHYDROUS, CALCIUM CHLORID [Concomitant]
  12. IODINE (J-IODE) [Concomitant]

REACTIONS (7)
  - SCLERODERMA [None]
  - MUSCULOSKELETAL STIFFNESS [None]
  - NEPHROGENIC SYSTEMIC FIBROSIS [None]
  - SKIN FIBROSIS [None]
  - OEDEMA [None]
  - PYREXIA [None]
  - EXTREMITY CONTRACTURE [None]
